FAERS Safety Report 11343442 (Version 2)
Quarter: 2015Q3

REPORT INFORMATION
  Report Type: Spontaneous
  Country: LB (occurrence: LB)
  Receive Date: 20150806
  Receipt Date: 20150901
  Transmission Date: 20151125
  Serious: Yes (Hospitalization, Other)
  Sender: FDA-Public Use
  Company Number: LB-ACCORD-032845

PATIENT
  Age: 33 Year
  Sex: Female

DRUGS (2)
  1. TRAMADOL/TRAMADOL HYDROCHLORIDE [Suspect]
     Active Substance: TRAMADOL HYDROCHLORIDE
     Indication: HEADACHE
     Dosage: 200 AND 400 MG ORALLY DAILY, CONSUMPTION TO 100 MG DAILY 1 WEEK PRIOR TO ADMISSION
     Route: 048
  2. PARACETAMOL [Concomitant]
     Active Substance: ACETAMINOPHEN
     Dosage: OCCASIONAL ACETAMINOPHEN INTAKE

REACTIONS (12)
  - Seizure [Unknown]
  - Restlessness [Recovering/Resolving]
  - Drug withdrawal syndrome [Unknown]
  - Anhedonia [Unknown]
  - Irritability [Recovering/Resolving]
  - Insomnia [Recovering/Resolving]
  - Tremor [Recovering/Resolving]
  - Hyperhidrosis [Unknown]
  - Anxiety [Unknown]
  - Drug abuse [Unknown]
  - Depression [Recovering/Resolving]
  - Mydriasis [Recovering/Resolving]
